FAERS Safety Report 20090569 (Version 2)
Quarter: 2021Q4

REPORT INFORMATION
  Report Type: Report from Study
  Country: TR (occurrence: None)
  Receive Date: 20211119
  Receipt Date: 20211122
  Transmission Date: 20220303
  Serious: Yes (Life-Threatening, Hospitalization)
  Sender: FDA-Public Use
  Company Number: TR-Eisai Medical Research-EC-2021-093097

PATIENT
  Age: 73 Year
  Sex: Female
  Weight: 70 kg

DRUGS (38)
  1. LENVATINIB [Suspect]
     Active Substance: LENVATINIB
     Indication: Endometrial cancer recurrent
     Route: 048
     Dates: start: 20200917, end: 20210223
  2. PEMBROLIZUMAB [Suspect]
     Active Substance: PEMBROLIZUMAB
     Indication: Endometrial cancer recurrent
     Route: 041
     Dates: start: 20200917, end: 20210111
  3. PEMBROLIZUMAB [Suspect]
     Active Substance: PEMBROLIZUMAB
     Route: 041
     Dates: start: 20210201, end: 20210201
  4. HYDROCHLOROTHIAZIDE\IRBESARTAN [Concomitant]
     Active Substance: HYDROCHLOROTHIAZIDE\IRBESARTAN
     Dates: start: 20201104
  5. ELECTROLYTES NOS;SODIUM LACTATE [Concomitant]
     Route: 042
     Dates: start: 20210223, end: 20210223
  6. ELECTROLYTES NOS;SODIUM LACTATE [Concomitant]
     Route: 042
     Dates: start: 20210225, end: 20210226
  7. TARGOCID [Concomitant]
     Active Substance: TEICOPLANIN
     Route: 042
     Dates: start: 20210225, end: 20210226
  8. ELECTROLYTES NOS\MINERALS [Concomitant]
     Active Substance: ELECTROLYTES NOS\MINERALS
     Route: 042
     Dates: start: 20210225, end: 20210302
  9. CALCIUM PICKEN [Concomitant]
     Route: 042
     Dates: start: 20210225, end: 20210302
  10. SETREX [Concomitant]
     Route: 042
     Dates: start: 20210225, end: 20210225
  11. PARACENOL [Concomitant]
     Route: 042
     Dates: start: 20210225, end: 20210302
  12. INTRAFEN [Concomitant]
     Route: 042
     Dates: start: 20210225, end: 20210225
  13. KETAVEL [Concomitant]
     Route: 042
     Dates: start: 20210225, end: 20210226
  14. OKSAPAR [Concomitant]
     Route: 042
     Dates: start: 20210225, end: 20210302
  15. ALDIN [Concomitant]
     Route: 042
     Dates: start: 20210225, end: 20210226
  16. REDOX C [Concomitant]
     Route: 042
     Dates: start: 20210225, end: 20210302
  17. MOPEM [Concomitant]
     Route: 042
     Dates: start: 20210226, end: 20210302
  18. DELIX [Concomitant]
     Route: 042
     Dates: start: 20210226, end: 20210302
  19. FLIXAIR [Concomitant]
     Route: 042
     Dates: start: 20210227, end: 20210302
  20. PRECORT [Concomitant]
     Route: 042
     Dates: start: 20210227, end: 20210302
  21. ZYGOSIS [Concomitant]
     Route: 042
     Dates: start: 20210227, end: 20210302
  22. METICURE [Concomitant]
     Route: 042
     Dates: start: 20210227, end: 20210227
  23. ACETYLCYSTEINE [Concomitant]
     Active Substance: ACETYLCYSTEINE
     Route: 042
     Dates: start: 20210227, end: 20210302
  24. DOBUTAMINE HYDROCHLORIDE [Concomitant]
     Active Substance: DOBUTAMINE HYDROCHLORIDE
     Route: 042
     Dates: start: 20210227, end: 20210302
  25. TRADOLEX [Concomitant]
     Route: 042
     Dates: start: 20210227, end: 20210302
  26. LEVOTHYROXINE SODIUM [Concomitant]
     Active Substance: LEVOTHYROXINE SODIUM
     Route: 042
     Dates: start: 20210227, end: 20210302
  27. MEPOLEX [Concomitant]
     Route: 042
     Dates: start: 20210227, end: 20210228
  28. FUROSON [Concomitant]
     Route: 042
     Dates: start: 20210227, end: 20210228
  29. CARDENOR [Concomitant]
     Route: 042
     Dates: start: 20210227, end: 20210228
  30. ALBUTEROL SULFATE\IPRATROPIUM BROMIDE [Concomitant]
     Active Substance: ALBUTEROL SULFATE\IPRATROPIUM BROMIDE
     Route: 042
     Dates: start: 20210227, end: 20210302
  31. CANDISEPT [Concomitant]
     Route: 042
     Dates: start: 20210227, end: 20210228
  32. SODIUM BICARBONATE [Concomitant]
     Active Substance: SODIUM BICARBONATE
     Route: 042
     Dates: start: 20210227, end: 20210228
  33. PRILOC [Concomitant]
     Route: 042
     Dates: start: 20210227, end: 20210227
  34. TERLIPRESSIN [Concomitant]
     Active Substance: TERLIPRESSIN
     Route: 042
     Dates: start: 20210227, end: 20210227
  35. ACETAZOLAMIDE [Concomitant]
     Active Substance: ACETAZOLAMIDE
     Route: 042
     Dates: start: 20210228, end: 20210302
  36. NITROGLYCERIN [Concomitant]
     Active Substance: NITROGLYCERIN
     Route: 042
     Dates: start: 20210228, end: 20210228
  37. TARGOCID [Concomitant]
     Active Substance: TEICOPLANIN
     Route: 042
     Dates: start: 20210228, end: 20210302
  38. TODAVIT [Concomitant]
     Route: 042
     Dates: start: 20210225, end: 20210302

REACTIONS (1)
  - Drug-induced liver injury [Not Recovered/Not Resolved]

NARRATIVE: CASE EVENT DATE: 20210301
